FAERS Safety Report 7503551-6 (Version None)
Quarter: 2011Q2

REPORT INFORMATION
  Report Type: 
  Country: None (occurrence: None)
  Receive Date: 20110525
  Receipt Date: 20110518
  Transmission Date: 20111010
  Serious: Yes (Other)
  Sender: FDA-Public Use
  Company Number: CN-ROCHE-778091

PATIENT
  Age: 60 Year
  Sex: Male

DRUGS (1)
  1. PEGASYS [Suspect]
     Indication: HEPATITIS B
     Route: 058
     Dates: start: 20101229

REACTIONS (1)
  - HEPATIC FIBROSIS [None]
